FAERS Safety Report 5819766-9 (Version None)
Quarter: 2008Q3

REPORT INFORMATION
  Report Type: 
  Country: None (occurrence: None)
  Receive Date: 20080718
  Receipt Date: 20080709
  Transmission Date: 20090109
  Serious: Yes (Death)
  Sender: FDA-Public Use
  Company Number: ADE2008-0246

PATIENT
  Age: 68 Year
  Sex: Female

DRUGS (3)
  1. MIRTAZAPINE [Suspect]
     Indication: DEPRESSION
     Dosage: 30MG - PO
     Route: 048
     Dates: start: 20051207
  2. DULOXETINE [Suspect]
     Indication: DEPRESSION
     Dosage: 60MG - PO
     Route: 048
     Dates: start: 20070118
  3. TEMAZEPAM [Concomitant]

REACTIONS (1)
  - SUBARACHNOID HAEMORRHAGE [None]
